FAERS Safety Report 8560781 (Version 3)
Quarter: 2014Q4

REPORT INFORMATION
  Report Type: Report from Study
  Country: US (occurrence: US)
  Receive Date: 20120514
  Receipt Date: 20141201
  Transmission Date: 20150529
  Serious: No
  Sender: FDA-Public Use
  Company Number: US-ALEXION-A201100515

PATIENT

DRUGS (4)
  1. BABY ASPIRIN [Concomitant]
     Active Substance: ASPIRIN
     Indication: ANTICOAGULANT THERAPY
     Dosage: UNK UNK, QD
     Route: 065
     Dates: start: 20100511
  2. FERROUS SULFATE [Concomitant]
     Active Substance: FERROUS SULFATE\FERROUS SULFATE, DRIED
     Indication: MINERAL SUPPLEMENTATION
     Dosage: 2 UNK, Q12D
     Route: 065
     Dates: start: 20100511
  3. SOLIRIS [Suspect]
     Active Substance: ECULIZUMAB
     Indication: PAROXYSMAL NOCTURNAL HAEMOGLOBINURIA
     Dosage: 900 MG, Q2W
     Route: 042
     Dates: start: 20100521
  4. FOLIC ACID. [Concomitant]
     Active Substance: FOLIC ACID
     Indication: PRODUCT USED FOR UNKNOWN INDICATION
     Dosage: UNK UNK, QD
     Route: 065
     Dates: start: 20100511

REACTIONS (4)
  - Nasopharyngitis [Recovered/Resolved]
  - Pyrexia [Recovering/Resolving]
  - Nasopharyngitis [Recovered/Resolved]
  - Sinusitis [Recovered/Resolved]

NARRATIVE: CASE EVENT DATE: 2014
